FAERS Safety Report 7432252 (Version 3)
Quarter: 2012Q4

REPORT INFORMATION
  Report Type: 
  Country: IR (occurrence: IR)
  Receive Date: 20100624
  Receipt Date: 20121004
  Transmission Date: 20130627
  Serious: Yes (Other)
  Sender: FDA-Public Use
  Company Number: IR-PFIZER INC-2010072973

PATIENT
  Age: 7 Year
  Sex: Male

DRUGS (1)
  1. BENZYLPENICILLIN SODIUM [Suspect]
     Indication: UPPER RESPIRATORY TRACT INFECTION
     Route: 030

REACTIONS (1)
  - Embolia cutis medicamentosa [Recovering/Resolving]
